FAERS Safety Report 14593117 (Version 4)
Quarter: 2025Q3

REPORT INFORMATION
  Report Type: Spontaneous
  Country: EU (occurrence: EU)
  Receive Date: 20180302
  Receipt Date: 20250731
  Transmission Date: 20251021
  Serious: Yes (Other)
  Sender: SANOFI AVENTIS
  Company Number: EU-TEVA-2017-FR-826094

PATIENT
  Age: 6 Year

DRUGS (12)
  1. ANTI-THYMOCYTE GLOBULIN (RABBIT) NOS [Suspect]
     Active Substance: LAPINE T-LYMPHOCYTE IMMUNE GLOBULIN
     Indication: Allogenic stem cell transplantation
  2. FLUDARABINE PHOSPHATE [Suspect]
     Active Substance: FLUDARABINE PHOSPHATE
     Indication: Allogenic stem cell transplantation
     Route: 042
  3. MELPHALAN [Suspect]
     Active Substance: MELPHALAN
     Indication: Allogenic stem cell transplantation
  4. CYCLOSPORINE [Concomitant]
     Active Substance: CYCLOSPORINE
     Indication: Prophylaxis against graft versus host disease
  5. MYCOPHENOLATE MOFETIL [Concomitant]
     Active Substance: MYCOPHENOLATE MOFETIL
     Indication: Prophylaxis against graft versus host disease
  6. INTERFERON GAMMA [Concomitant]
     Active Substance: INTERFERON GAMMA
  7. AMIKACIN [Concomitant]
     Active Substance: AMIKACIN
     Indication: Mycobacterial infection
  8. ETHAMBUTOL [Concomitant]
     Active Substance: ETHAMBUTOL HYDROCHLORIDE
     Indication: Mycobacterial infection
  9. CIPROFLOXACIN [Concomitant]
     Active Substance: CIPROFLOXACIN
     Indication: Mycobacterial infection
  10. LINEZOLID [Concomitant]
     Active Substance: LINEZOLID
     Indication: Mycobacterial infection
  11. MOXIFLOXACIN [Concomitant]
     Active Substance: MOXIFLOXACIN
     Indication: Mycobacterial infection
  12. ISONIAZID [Concomitant]
     Active Substance: ISONIAZID

REACTIONS (4)
  - Skin papilloma [Unknown]
  - Mucosal inflammation [Unknown]
  - Herpes zoster meningoencephalitis [Unknown]
  - Neutropenia [Unknown]
